FAERS Safety Report 20864608 (Version 16)
Quarter: 2024Q4

REPORT INFORMATION
  Report Type: Report from Study
  Country: IT (occurrence: IT)
  Receive Date: 20220524
  Receipt Date: 20241121
  Transmission Date: 20250115
  Serious: No
  Sender: ROCHE
  Company Number: IT-ROCHE-3101130

PATIENT
  Age: 51 Year
  Sex: Female
  Weight: 48.0 kg

DRUGS (47)
  1. OCRELIZUMAB [Suspect]
     Active Substance: OCRELIZUMAB
     Indication: Relapsing-remitting multiple sclerosis
     Dosage: 2ND INITIAL DOSE WAS ON 12/OCT/2020
     Route: 042
     Dates: start: 20200928, end: 20200928
  2. OCRELIZUMAB [Suspect]
     Active Substance: OCRELIZUMAB
     Route: 042
     Dates: start: 20210414, end: 20210414
  3. OCRELIZUMAB [Suspect]
     Active Substance: OCRELIZUMAB
     Route: 042
     Dates: start: 20221121, end: 20221121
  4. OCRELIZUMAB [Suspect]
     Active Substance: OCRELIZUMAB
     Route: 042
     Dates: start: 20211026, end: 20211026
  5. OCRELIZUMAB [Suspect]
     Active Substance: OCRELIZUMAB
     Route: 042
     Dates: start: 20220518, end: 20220518
  6. OCRELIZUMAB [Suspect]
     Active Substance: OCRELIZUMAB
     Route: 042
     Dates: start: 20230511, end: 20230511
  7. OCRELIZUMAB [Suspect]
     Active Substance: OCRELIZUMAB
     Route: 042
     Dates: start: 20231115, end: 20231115
  8. OCRELIZUMAB [Suspect]
     Active Substance: OCRELIZUMAB
     Route: 042
     Dates: start: 20240513, end: 20240513
  9. OCRELIZUMAB [Suspect]
     Active Substance: OCRELIZUMAB
     Route: 042
  10. OCRELIZUMAB [Suspect]
     Active Substance: OCRELIZUMAB
     Route: 042
     Dates: start: 20241112, end: 20241112
  11. METHYLPREDNISOLONE [Concomitant]
     Active Substance: METHYLPREDNISOLONE
     Dosage: 21/NOV/2022, 11/MAY/2023, 15/NOV/2023, 13/MAY/2024? FREQUENCY TEXT:ONCE BEFORE INFUSION
     Route: 042
     Dates: start: 20220518, end: 20220518
  12. METHYLPREDNISOLONE [Concomitant]
     Active Substance: METHYLPREDNISOLONE
     Dosage: 21/NOV/2022, 11/MAY/2023, 15/NOV/2023, 13/MAY/2024? FREQUENCY TEXT:ONCE BEFORE INFUSION
     Route: 042
     Dates: start: 20241112, end: 20241112
  13. METHYLPREDNISOLONE [Concomitant]
     Active Substance: METHYLPREDNISOLONE
     Route: 042
     Dates: start: 20241112, end: 20241112
  14. CETIRIZINE [Concomitant]
     Active Substance: CETIRIZINE HYDROCHLORIDE
     Dosage: 21/NOV/2022, 11/MAY/2023,15/NOV/2023, 13/MAY/2024? FREQUENCY TEXT:ONCE BEFORE INFUSION
     Route: 048
     Dates: start: 20220518, end: 20220518
  15. CETIRIZINE [Concomitant]
     Active Substance: CETIRIZINE HYDROCHLORIDE
     Route: 048
     Dates: start: 20241112, end: 20241112
  16. ACETAMINOPHEN [Concomitant]
     Active Substance: ACETAMINOPHEN
     Route: 048
     Dates: start: 20220211, end: 20220217
  17. ACETAMINOPHEN [Concomitant]
     Active Substance: ACETAMINOPHEN
     Dosage: FREQUENCY TEXT:ONCE BEFORE INFUSION
     Route: 048
     Dates: start: 20220518, end: 20220518
  18. ACETAMINOPHEN [Concomitant]
     Active Substance: ACETAMINOPHEN
     Dosage: FREQUENCY TEXT:ONCE BEFORE INFUSION
     Route: 048
     Dates: start: 20220704, end: 20220705
  19. ACETAMINOPHEN [Concomitant]
     Active Substance: ACETAMINOPHEN
     Dosage: FREQUENCY TEXT:ONCE BEFORE INFUSION
     Route: 048
     Dates: start: 20221211, end: 20221223
  20. ACETAMINOPHEN [Concomitant]
     Active Substance: ACETAMINOPHEN
     Dosage: FREQUENCY TEXT:ONCE BEFORE INFUSION
     Route: 048
     Dates: start: 20230511, end: 20230511
  21. ACETAMINOPHEN [Concomitant]
     Active Substance: ACETAMINOPHEN
     Dosage: FREQUENCY TEXT:ONCE BEFORE INFUSION
     Route: 048
     Dates: start: 20221121, end: 20221121
  22. ACETAMINOPHEN [Concomitant]
     Active Substance: ACETAMINOPHEN
     Dosage: 13/MAY/2024? FREQUENCY TEXT:ONCE BEFORE INFUSION
     Route: 048
     Dates: start: 20231115, end: 20231115
  23. ACETAMINOPHEN [Concomitant]
     Active Substance: ACETAMINOPHEN
     Route: 048
     Dates: start: 20241112, end: 20241112
  24. OMEPRAZOLE [Concomitant]
     Active Substance: OMEPRAZOLE
     Dates: start: 20220128, end: 20220204
  25. PANTOPRAZOLE [Concomitant]
     Active Substance: PANTOPRAZOLE
     Indication: Prophylaxis
     Route: 048
     Dates: start: 20220201, end: 20220206
  26. PANTOPRAZOLE [Concomitant]
     Active Substance: PANTOPRAZOLE
     Route: 048
     Dates: start: 20221013
  27. AZITHROMYCIN [Concomitant]
     Active Substance: AZITHROMYCIN
     Dates: start: 20220211, end: 20220217
  28. INFLUENZA VIRUS VACCINE [Concomitant]
     Active Substance: INFLUENZA VIRUS VACCINE
     Dosage: 1 OTHER? FREQUENCY TEXT:OTHER
     Route: 030
     Dates: start: 20231104, end: 20231104
  29. INFLUENZA VIRUS VACCINE [Concomitant]
     Active Substance: INFLUENZA VIRUS VACCINE
     Dosage: 1 OTHER? FREQUENCY TEXT:OTHER
     Route: 030
     Dates: start: 20241011, end: 20241011
  30. VELAMOX [AMOXICILLIN] [Concomitant]
     Route: 048
     Dates: start: 202311, end: 202311
  31. ARCOXIA [Concomitant]
     Active Substance: ETORICOXIB
     Route: 048
     Dates: start: 20220201, end: 20220206
  32. ARCOXIA [Concomitant]
     Active Substance: ETORICOXIB
     Route: 048
     Dates: start: 20220128, end: 20220204
  33. CLARITHROMYCIN [Concomitant]
     Active Substance: CLARITHROMYCIN
     Route: 048
     Dates: start: 20221220, end: 20221227
  34. THIOCOLCHICOSIDE [Concomitant]
     Active Substance: THIOCOLCHICOSIDE
     Route: 048
     Dates: start: 20220313, end: 20220320
  35. NEURONORM [Concomitant]
     Indication: Adverse event
     Route: 048
     Dates: start: 20230311, end: 20230311
  36. NEURONORM [Concomitant]
     Route: 048
     Dates: start: 20230414
  37. VOLTAREN [Concomitant]
     Active Substance: DICLOFENAC SODIUM
     Route: 048
     Dates: start: 20220428, end: 20220505
  38. METRONIDAZOLE [Concomitant]
     Active Substance: METRONIDAZOLE
     Dates: start: 20240110
  39. CORTISON CHEMICETINA [Concomitant]
     Dosage: 2 OTHER,
     Route: 047
     Dates: start: 20220404, end: 20220414
  40. CORTISON CHEMICETINA [Concomitant]
     Dosage: 2 OTHER,
     Route: 047
     Dates: start: 20230528, end: 20230607
  41. DICLOFENAC SODIUM [Concomitant]
     Active Substance: DICLOFENAC SODIUM
     Route: 062
     Dates: start: 20230520, end: 20230605
  42. ETORICOXIB [Concomitant]
     Active Substance: ETORICOXIB
     Dosage: 01-FEB-2022
     Route: 048
     Dates: start: 20220128, end: 20220204
  43. AMOXICILLIN [Concomitant]
     Active Substance: AMOXICILLIN
     Dates: start: 202312, end: 202312
  44. AMOXICILLIN [Concomitant]
     Active Substance: AMOXICILLIN
     Dates: start: 20240404, end: 20240407
  45. NIMESULIDE [Concomitant]
     Active Substance: NIMESULIDE
     Dosage: OTHER
     Route: 048
     Dates: start: 20220211, end: 20220217
  46. NIMESULIDE [Concomitant]
     Active Substance: NIMESULIDE
     Dosage: OTHER
     Route: 048
     Dates: start: 20240922, end: 20240926
  47. TOBRAMYCIN [Concomitant]
     Active Substance: TOBRAMYCIN\TOBRAMYCIN SULFATE
     Dates: start: 20240904, end: 20240910

REACTIONS (2)
  - Sciatica [Not Recovered/Not Resolved]
  - COVID-19 [Recovered/Resolved]

NARRATIVE: CASE EVENT DATE: 20220211
